FAERS Safety Report 6303933-4 (Version None)
Quarter: 2009Q3

REPORT INFORMATION
  Report Type: 
  Country: None (occurrence: None)
  Receive Date: 20090805
  Receipt Date: 20090720
  Transmission Date: 20100115
  Serious: Yes (Hospitalization)
  Sender: FDA-Public Use
  Company Number: ACO_00576_2009

PATIENT
  Sex: Female

DRUGS (2)
  1. SIRDALUD           (SIRDALUD - TIZANIDINE HYDROCHLORIDE) (NOT SPECIFIE [Suspect]
     Indication: BACK PAIN
     Dosage: (DF)
     Dates: start: 20090205, end: 20090206
  2. IMODIUM [Suspect]
     Indication: ENTERITIS
     Dosage: (DF)
     Dates: start: 20090205, end: 20090206

REACTIONS (7)
  - BACK PAIN [None]
  - CONFUSIONAL STATE [None]
  - DISORIENTATION [None]
  - ENCEPHALOPATHY [None]
  - FALL [None]
  - HEAD INJURY [None]
  - SOMNOLENCE [None]
